FAERS Safety Report 22330852 (Version 1)
Quarter: 2023Q2

REPORT INFORMATION
  Report Type: Spontaneous
  Country: KR (occurrence: KR)
  Receive Date: 20230517
  Receipt Date: 20230517
  Transmission Date: 20230721
  Serious: Yes (Other)
  Sender: FDA-Public Use
  Company Number: KR-SUN PHARMACEUTICAL INDUSTRIES LTD-2023R1-381158

PATIENT
  Age: 13 Year
  Sex: Male
  Weight: 36.3 kg

DRUGS (1)
  1. NAPROXEN [Suspect]
     Active Substance: NAPROXEN
     Indication: Chronic recurrent multifocal osteomyelitis
     Dosage: 500 MILLIGRAM, BID
     Route: 065

REACTIONS (4)
  - Condition aggravated [Unknown]
  - Gastrointestinal disorder [Recovering/Resolving]
  - Therapy non-responder [Unknown]
  - Treatment failure [Unknown]
